FAERS Safety Report 6945618-7 (Version None)
Quarter: 2010Q3

REPORT INFORMATION
  Report Type: 
  Country: None (occurrence: None)
  Receive Date: 20100827
  Receipt Date: 20100819
  Transmission Date: 20110219
  Serious: Yes (Life-Threatening, Hospitalization, Other)
  Sender: FDA-Public Use
  Company Number: JP-ABBOTT-10P-087-0655058-00

PATIENT
  Sex: Female

DRUGS (16)
  1. HUMIRA [Suspect]
     Indication: RHEUMATOID ARTHRITIS
     Route: 058
     Dates: start: 20100412, end: 20100621
  2. METHOTREXATE [Concomitant]
     Indication: RHEUMATOID ARTHRITIS
     Route: 048
     Dates: end: 20090401
  3. METHOTREXATE [Concomitant]
     Dates: start: 20090401, end: 20100626
  4. BUCILLAMINE [Concomitant]
     Indication: RHEUMATOID ARTHRITIS
     Route: 048
     Dates: start: 20000501, end: 20100626
  5. TACROLIMUS [Concomitant]
     Indication: RHEUMATOID ARTHRITIS
     Route: 048
     Dates: start: 20091130, end: 20100411
  6. PREDNISOLONE [Concomitant]
     Indication: RHEUMATOID ARTHRITIS
     Route: 048
     Dates: start: 20000508
  7. LOXOPROFEN SODIUM HYDRATE [Concomitant]
     Indication: RHEUMATOID ARTHRITIS
     Route: 048
     Dates: start: 20000501, end: 20100626
  8. REBAMIPIDE [Concomitant]
     Indication: PROPHYLAXIS
     Route: 048
     Dates: start: 20000501, end: 20100626
  9. REBAMIPIDE [Concomitant]
     Indication: ADVERSE DRUG REACTION
  10. ALFACALCIDOL [Concomitant]
     Indication: OSTEOPOROSIS PROPHYLAXIS
     Route: 048
     Dates: start: 20030612, end: 20100626
  11. CALCIUM L-ASPARTATE HYDRATE [Concomitant]
     Indication: OSTEOPOROSIS PROPHYLAXIS
     Route: 048
     Dates: start: 20030612, end: 20100626
  12. SODIUM RISEDRONATE HYDRATE [Concomitant]
     Indication: OSTEOPOROSIS PROPHYLAXIS
     Route: 048
     Dates: start: 20080614, end: 20100626
  13. FOLIC ACID [Concomitant]
     Indication: PROPHYLAXIS
     Route: 048
     Dates: start: 20090406, end: 20100626
  14. FOLIC ACID [Concomitant]
     Indication: ADVERSE DRUG REACTION
  15. PSL [Concomitant]
     Indication: RHEUMATOID ARTHRITIS
     Dates: end: 20090401
  16. PSL [Concomitant]
     Dates: start: 20090401

REACTIONS (26)
  - ANAPHYLACTIC SHOCK [None]
  - ARTHRALGIA [None]
  - ASCITES [None]
  - ATELECTASIS [None]
  - BILIARY DILATATION [None]
  - BONE NEOPLASM [None]
  - DYSSTASIA [None]
  - FLUID RETENTION [None]
  - FRACTURED ISCHIUM [None]
  - GAIT DISTURBANCE [None]
  - HEPATIC CYST [None]
  - INTERVERTEBRAL DISCITIS [None]
  - LOCALISED OEDEMA [None]
  - MENINGEAL NEOPLASM [None]
  - MUSCLE ATROPHY [None]
  - PAIN [None]
  - PARAPLEGIA [None]
  - PERITONITIS [None]
  - PLEURAL EFFUSION [None]
  - PLEURISY [None]
  - PUBIS FRACTURE [None]
  - PURULENT DISCHARGE [None]
  - SEPSIS [None]
  - SPINAL COLUMN STENOSIS [None]
  - SPINAL COMPRESSION FRACTURE [None]
  - SPONDYLITIS [None]
